FAERS Safety Report 8771825 (Version 2)
Quarter: 2012Q4

REPORT INFORMATION
  Report Type: 
  Country: GB (occurrence: GB)
  Receive Date: 20120905
  Receipt Date: 20121213
  Transmission Date: 20130627
  Serious: Yes (Other)
  Sender: FDA-Public Use
  Company Number: GB-PFIZER INC-2012212279

PATIENT
  Age: 53 Year
  Sex: Female
  Weight: 74 kg

DRUGS (7)
  1. SULFASALAZINE [Suspect]
     Indication: ARTHRITIS
     Dates: start: 201201, end: 20120807
  2. SULFASALAZINE [Suspect]
     Dosage: UNK
     Dates: start: 20120315, end: 20120414
  3. SULFASALAZINE [Suspect]
     Dosage: Stopped treatment between 12APR2012 - 27APR2012
     Dates: start: 20120427, end: 20120807
  4. OTOMIZE [Concomitant]
     Dates: start: 20120626, end: 20120703
  5. OLIVE OIL [Concomitant]
     Dates: start: 20120626, end: 20120710
  6. SALBUTAMOL [Concomitant]
     Dates: start: 20120710, end: 20120807
  7. CHLORPHENAMINE [Concomitant]
     Dates: start: 20120802, end: 20120816

REACTIONS (1)
  - Photosensitivity reaction [Recovered/Resolved]
